FAERS Safety Report 16123616 (Version 1)
Quarter: 2019Q1

REPORT INFORMATION
  Report Type: Spontaneous
  Country: FR (occurrence: FR)
  Receive Date: 20190327
  Receipt Date: 20190327
  Transmission Date: 20190418
  Serious: Yes (Other)
  Sender: FDA-Public Use
  Company Number: FR-MYLANLABS-2019M1026629

PATIENT
  Age: 31 Year
  Sex: Female

DRUGS (6)
  1. PREDNISONE. [Suspect]
     Active Substance: PREDNISONE
     Indication: CYSTOID MACULAR OEDEMA
     Dosage: 16 MILLIGRAM, QD
  2. SOLU-MEDROL [Concomitant]
     Active Substance: METHYLPREDNISOLONE SODIUM SUCCINATE
     Indication: CYSTOID MACULAR OEDEMA
     Dosage: 1 GRAM (3 BOLUS)
     Route: 048
     Dates: start: 2016
  3. SOLU-MEDROL [Concomitant]
     Active Substance: METHYLPREDNISOLONE SODIUM SUCCINATE
     Dosage: 1 MILLIGRAM/KILOGRAM
     Route: 048
     Dates: start: 2016
  4. PREDNISONE. [Suspect]
     Active Substance: PREDNISONE
     Dosage: 12 MILLIGRAM, QD
  5. INFLIXIMAB [Concomitant]
     Active Substance: INFLIXIMAB
     Indication: CYSTOID MACULAR OEDEMA
     Dosage: 5 MILLIGRAM/KILOGRAM
     Dates: start: 201701, end: 201801
  6. BEVACIZUMAB. [Concomitant]
     Active Substance: BEVACIZUMAB
     Indication: CYSTOID MACULAR OEDEMA
     Dosage: INJECTION
     Route: 031
     Dates: start: 2016

REACTIONS (3)
  - Cystoid macular oedema [Recovered/Resolved]
  - Disease recurrence [Recovered/Resolved]
  - Vitreous haemorrhage [Recovered/Resolved]

NARRATIVE: CASE EVENT DATE: 201611
